FAERS Safety Report 24996327 (Version 1)
Quarter: 2025Q1

REPORT INFORMATION
  Report Type: Spontaneous
  Country: US (occurrence: US)
  Receive Date: 20250221
  Receipt Date: 20250221
  Transmission Date: 20250409
  Serious: No
  Sender: PFIZER
  Company Number: US-PFIZER INC-202500039247

PATIENT
  Age: 42 Year
  Sex: Male

DRUGS (9)
  1. XELJANZ XR [Suspect]
     Active Substance: TOFACITINIB CITRATE
     Dosage: 11 MG, DAILY
     Route: 048
     Dates: start: 202408
  2. OMEPRAZOLE [Concomitant]
     Active Substance: OMEPRAZOLE
  3. NABUMETONE [Concomitant]
     Active Substance: NABUMETONE
  4. GEMFIBROZIL [Concomitant]
     Active Substance: GEMFIBROZIL
  5. OMEPRAZOLE [Concomitant]
     Active Substance: OMEPRAZOLE
  6. VITAMIN D NOS [Concomitant]
     Active Substance: CHOLECALCIFEROL\ERGOCALCIFEROL
  7. AMLODIPINE BESYLATE [Concomitant]
     Active Substance: AMLODIPINE BESYLATE
  8. LISINOPRIL [Concomitant]
     Active Substance: LISINOPRIL
  9. METHOCARBAMOL [Concomitant]
     Active Substance: METHOCARBAMOL

REACTIONS (2)
  - Pain [Not Recovered/Not Resolved]
  - Mental disorder [Not Recovered/Not Resolved]
